FAERS Safety Report 5045606-4 (Version None)
Quarter: 2006Q3

REPORT INFORMATION
  Report Type: 
  Country: None (occurrence: None)
  Receive Date: 20060707
  Receipt Date: 20060628
  Transmission Date: 20061208
  Serious: Yes (Other)
  Sender: FDA-Public Use
  Company Number: US-ROCHE-453681

PATIENT
  Age: 39 Year
  Sex: Female

DRUGS (7)
  1. PEGASYS [Suspect]
     Dosage: ROUTE REPORTED AS INJ. FORM REPORTED AS SHOT.
     Route: 050
     Dates: start: 20060311
  2. COPEGUS [Suspect]
     Route: 048
     Dates: start: 20060311
  3. SYNTHROID [Concomitant]
     Indication: THYROID DISORDER
  4. LOPID [Concomitant]
  5. COUMADIN [Concomitant]
  6. EFFEXOR [Concomitant]
  7. VICODIN [Concomitant]

REACTIONS (3)
  - ABDOMINAL DISTENSION [None]
  - ALOPECIA [None]
  - HAIR TEXTURE ABNORMAL [None]
